FAERS Safety Report 5755284-4 (Version None)
Quarter: 2008Q2

REPORT INFORMATION
  Report Type: 
  Country: None (occurrence: None)
  Receive Date: 20080529
  Receipt Date: 20080529
  Transmission Date: 20081010
  Serious: Yes (Death)
  Sender: FDA-Public Use
  Company Number: None

PATIENT
  Sex: Male
  Weight: 68.4 kg

DRUGS (1)
  1. DOCETAXEL [Suspect]
     Indication: LARYNGEAL DISORDER
     Dosage: 75MG/M2 IV
     Route: 042

REACTIONS (7)
  - COAGULOPATHY [None]
  - CONFUSIONAL STATE [None]
  - DISEASE PROGRESSION [None]
  - DYSPNOEA [None]
  - LIVER FUNCTION TEST ABNORMAL [None]
  - PNEUMONIA [None]
  - PULMONARY EMBOLISM [None]
